FAERS Safety Report 20976809 (Version 1)
Quarter: 2022Q2

REPORT INFORMATION
  Report Type: Spontaneous
  Country: JP (occurrence: JP)
  Receive Date: 20220617
  Receipt Date: 20220617
  Transmission Date: 20220720
  Serious: Yes (Hospitalization)
  Sender: FDA-Public Use
  Company Number: JP-ELI_LILLY_AND_COMPANY-JP202204010827

PATIENT
  Age: 82 Year
  Sex: Female

DRUGS (16)
  1. OLUMIANT [Suspect]
     Active Substance: BARICITINIB
     Indication: Rheumatoid arthritis
     Dosage: UNK
     Route: 048
     Dates: start: 20200430
  2. PREDNISOLONE [Suspect]
     Active Substance: PREDNISOLONE
     Indication: Rheumatoid arthritis
     Dosage: 20 MG
     Dates: start: 20141022
  3. PREDNISOLONE [Suspect]
     Active Substance: PREDNISOLONE
     Dosage: 15 MG
     Dates: start: 20141217
  4. PREDNISOLONE [Suspect]
     Active Substance: PREDNISOLONE
     Dosage: 10 MG
     Dates: start: 20150128
  5. PREDNISOLONE [Suspect]
     Active Substance: PREDNISOLONE
     Dosage: 7.5 MG
     Dates: start: 20150311
  6. PREDNISOLONE [Suspect]
     Active Substance: PREDNISOLONE
     Dosage: 5 MG
     Dates: start: 20150513
  7. PREDNISOLONE [Suspect]
     Active Substance: PREDNISOLONE
     Dosage: 10 MG
  8. PREDNISOLONE [Suspect]
     Active Substance: PREDNISOLONE
     Dosage: 9 MG
     Dates: start: 20180720
  9. PREDNISOLONE [Suspect]
     Active Substance: PREDNISOLONE
     Dosage: 10 MG
     Dates: start: 20180808
  10. PREDNISOLONE [Suspect]
     Active Substance: PREDNISOLONE
     Dosage: 6 MG
     Dates: start: 20181130
  11. PREDNISOLONE [Suspect]
     Active Substance: PREDNISOLONE
     Dosage: 5 MG
     Dates: start: 20181228
  12. PREDNISOLONE [Suspect]
     Active Substance: PREDNISOLONE
     Dosage: 2 MG
  13. IGURATIMOD [Suspect]
     Active Substance: IGURATIMOD
     Indication: Rheumatoid arthritis
     Dosage: 25 MG
     Dates: start: 20180420
  14. IGURATIMOD [Suspect]
     Active Substance: IGURATIMOD
     Dosage: 50 MG
     Dates: start: 20180525
  15. IGURATIMOD [Suspect]
     Active Substance: IGURATIMOD
     Dosage: 25 MG
     Dates: start: 20201229
  16. IGURATIMOD [Suspect]
     Active Substance: IGURATIMOD
     Dosage: 50 MG

REACTIONS (3)
  - Ovarian cancer stage I [Recovered/Resolved with Sequelae]
  - Renal cell carcinoma stage I [Recovered/Resolved with Sequelae]
  - Pollakiuria [Unknown]

NARRATIVE: CASE EVENT DATE: 20210531
